FAERS Safety Report 8550867-0 (Version None)
Quarter: 2012Q3

REPORT INFORMATION
  Report Type: 
  Country: None (occurrence: None)
  Receive Date: 20120730
  Receipt Date: 20110908
  Transmission Date: 20120928
  Serious: No
  Sender: FDA-Public Use
  Company Number: US-GLAXOSMITHKLINE-A0943894A

PATIENT
  Age: 85 Year
  Sex: Female

DRUGS (2)
  1. RANITIDINE [Suspect]
     Indication: GASTRIC DISORDER
     Dosage: 1TAB TWICE PER DAY
     Route: 048
     Dates: start: 20110801
  2. DIABETES MEDICATION [Concomitant]

REACTIONS (3)
  - RHINORRHOEA [None]
  - NAUSEA [None]
  - HYPERSENSITIVITY [None]
